FAERS Safety Report 7189607-9 (Version None)
Quarter: 2010Q4

REPORT INFORMATION
  Report Type: 
  Country: None (occurrence: None)
  Receive Date: 20101223
  Receipt Date: 20101214
  Transmission Date: 20110411
  Serious: No
  Sender: FDA-Public Use
  Company Number: US-BIOGENIDEC-2010BI039839

PATIENT
  Age: 44 Year
  Sex: Female

DRUGS (3)
  1. TYSABRI [Suspect]
     Indication: MULTIPLE SCLEROSIS
     Route: 042
     Dates: start: 20080417
  2. AVONEX [Concomitant]
     Route: 030
  3. AVONEX [Concomitant]
     Route: 030

REACTIONS (2)
  - ANXIETY [None]
  - DRUG SPECIFIC ANTIBODY PRESENT [None]
